FAERS Safety Report 7691018-4 (Version None)
Quarter: 2011Q3

REPORT INFORMATION
  Report Type: 
  Country: None (occurrence: None)
  Receive Date: 20110818
  Receipt Date: 20110810
  Transmission Date: 20111222
  Serious: Yes (Hospitalization, Other)
  Sender: FDA-Public Use
  Company Number: BE-BAXTER-2011BH024197

PATIENT
  Age: 6 Year
  Sex: Male
  Weight: 48 kg

DRUGS (2)
  1. GAMMAGARD LIQUID [Suspect]
     Indication: EVANS SYNDROME
     Route: 065
     Dates: start: 20110223, end: 20110330
  2. GAMMAGARD LIQUID [Suspect]
     Indication: OFF LABEL USE
     Route: 065
     Dates: start: 20110223, end: 20110330

REACTIONS (2)
  - THERAPEUTIC RESPONSE DECREASED [None]
  - HAEMOLYTIC ANAEMIA [None]
